FAERS Safety Report 8303718-3 (Version None)
Quarter: 2012Q2

REPORT INFORMATION
  Report Type: 
  Country: None (occurrence: None)
  Receive Date: 20120423
  Receipt Date: 20120417
  Transmission Date: 20120825
  Serious: Yes (Other)
  Sender: FDA-Public Use
  Company Number: FR-BAYER-2012-017837

PATIENT
  Age: 60 Year
  Sex: Male
  Weight: 88 kg

DRUGS (17)
  1. GEMCITABINE [Suspect]
     Indication: HEPATIC CANCER METASTATIC
  2. VALSARTAN  AND HYDROCHLOROTHIAZIDE [Concomitant]
     Indication: HYPERTENSION
     Dosage: DOSE: 160MG
     Route: 048
     Dates: start: 20101201
  3. LANTUS [Concomitant]
     Indication: DIABETES MELLITUS
     Dosage: 16 IU, QD
     Route: 058
     Dates: start: 20120220
  4. OXALIPLATIN [Suspect]
     Indication: HEPATIC NEOPLASM MALIGNANT
     Dosage: DAILY DOSE: 160
     Route: 042
     Dates: start: 20111027, end: 20111222
  5. SORAFENIB (RAF KINASE INHIBITOR) [Suspect]
     Indication: HEPATIC NEOPLASM MALIGNANT
     Dosage: DAILY DOSE: 800MG
     Route: 048
     Dates: start: 20111026, end: 20120104
  6. OXALIPLATIN [Suspect]
     Indication: HEPATIC CANCER METASTATIC
  7. GEMCITABINE [Suspect]
     Indication: HEPATIC NEOPLASM MALIGNANT
     Dosage: DAILY DOSE: 2000
     Route: 042
     Dates: start: 20111026, end: 20111221
  8. RUPATADINE [Concomitant]
     Indication: PRURITUS
     Dosage: DOSE: 10 MG
     Route: 048
  9. QUESTRAN [Concomitant]
     Indication: PRURITUS
     Dosage: DOSE: 1 SACHET
     Route: 048
     Dates: start: 20111020
  10. SORAFENIB (RAF KINASE INHIBITOR) [Suspect]
     Indication: HEPATIC CANCER METASTATIC
  11. NEBIVOLOL HCL [Concomitant]
     Indication: HYPERTENSION
     Dosage: DOSE: 5MG
     Route: 048
     Dates: start: 20100101
  12. LANTUS [Concomitant]
     Dosage: DOSE: 16 IU
     Route: 058
     Dates: start: 20120220
  13. HUMALOG [Concomitant]
     Indication: DIABETES MELLITUS
     Dosage: 5.7.7
     Route: 058
     Dates: start: 20110901
  14. HUMALOG [Concomitant]
     Dosage: UNK
     Dates: start: 20120118
  15. VITAMIN B1 AND B6 [Concomitant]
     Indication: HYPOVITAMINOSIS
     Dosage: DOSE: 3 CP
     Route: 048
     Dates: start: 20110915
  16. IPERTEN [Concomitant]
     Indication: HYPERTENSION
     Dosage: DOSE: 30MG
     Route: 048
     Dates: start: 20060101
  17. PANTOPRAZOLE [Concomitant]
     Indication: GASTRITIS
     Dosage: DOSE: 40 MG
     Route: 048
     Dates: start: 20110101

REACTIONS (2)
  - MYALGIA [None]
  - MUSCLE NECROSIS [None]
